FAERS Safety Report 23991074 (Version 2)
Quarter: 2024Q3

REPORT INFORMATION
  Report Type: Spontaneous
  Country: BE (occurrence: BE)
  Receive Date: 20240619
  Receipt Date: 20240705
  Transmission Date: 20241016
  Serious: Yes (Hospitalization)
  Sender: TEVA
  Company Number: BE-TEVA-VS-3209415

PATIENT
  Age: 47 Year
  Sex: Female

DRUGS (5)
  1. ETHINYL ESTRADIOL\LEVONORGESTREL [Suspect]
     Active Substance: ETHINYL ESTRADIOL\LEVONORGESTREL
     Indication: Oral contraception
     Dosage: FORMULATION: PILLS
     Route: 048
  2. DESLORATADINE [Concomitant]
     Active Substance: DESLORATADINE
     Indication: Seasonal allergy
     Route: 065
  3. RIVAROXABAN [Suspect]
     Active Substance: RIVAROXABAN
     Indication: Embolism venous
     Route: 065
  4. RIVAROXABAN [Suspect]
     Active Substance: RIVAROXABAN
     Indication: Embolism venous
     Route: 065
  5. Beclometasone formoterol [Concomitant]
     Indication: Asthma
     Dosage: INHALER
     Route: 065

REACTIONS (5)
  - Embolism venous [Recovering/Resolving]
  - Pulmonary embolism [Recovering/Resolving]
  - Pulmonary hypertension [Recovering/Resolving]
  - Vaginal haemorrhage [Unknown]
  - Drug withdrawal syndrome [Unknown]
